FAERS Safety Report 11419504 (Version 2)
Quarter: 2015Q3

REPORT INFORMATION
  Report Type: Spontaneous
  Country: RO (occurrence: RO)
  Receive Date: 20150826
  Receipt Date: 20150908
  Transmission Date: 20151125
  Serious: Yes (Hospitalization)
  Sender: FDA-Public Use
  Company Number: RO-PFIZER INC-2015279967

PATIENT
  Age: 7 Year
  Sex: Male

DRUGS (7)
  1. CIPRINOL /00697202/ [Concomitant]
     Indication: BACTERIAL INFECTION
     Dosage: 26 MG/KG, DAILY
     Route: 042
     Dates: start: 20150724, end: 20150806
  2. VIROLEX /00587301/ [Concomitant]
     Indication: VIRAL INFECTION
     Dosage: 50 MG/KG OF BODY WEIGHT PER DAY
     Route: 042
     Dates: start: 20150711, end: 20150801
  3. ZYVOXID [Suspect]
     Active Substance: LINEZOLID
     Indication: BACTERIAL INFECTION
     Dosage: 10 MG/KG, 2X/DAY
     Route: 042
     Dates: start: 20150801, end: 20150804
  4. VFEND [Concomitant]
     Active Substance: VORICONAZOLE
     Indication: FUNGAL INFECTION
     Dosage: 8 MG/KG OF BODY WEIGHT PER DAY
     Route: 042
     Dates: start: 20150724, end: 20150809
  5. CIPRINOL /00697202/ [Concomitant]
     Indication: BACTERIAL INFECTION
     Dosage: 26 MG/KG OF BODY WEIGHT PER DAY
     Route: 042
     Dates: start: 20150724, end: 20150806
  6. MERONEM [Concomitant]
     Active Substance: MEROPENEM
     Indication: BACTERIAL INFECTION
  7. MERONEM [Concomitant]
     Active Substance: MEROPENEM
     Indication: BACTERIAL INFECTION
     Dosage: 100 MG/KG OF BODY WEIGHT PER DAY
     Route: 042
     Dates: start: 20150719, end: 20150801

REACTIONS (2)
  - Rash macular [Recovered/Resolved]
  - Skin plaque [Recovered/Resolved]

NARRATIVE: CASE EVENT DATE: 20150803
